FAERS Safety Report 6171096-4 (Version None)
Quarter: 2009Q2

REPORT INFORMATION
  Report Type: 
  Country: None (occurrence: None)
  Receive Date: 20090429
  Receipt Date: 20090420
  Transmission Date: 20091009
  Serious: Yes (Other)
  Sender: FDA-Public Use
  Company Number: PHHY2009IT14889

PATIENT
  Age: 49 Year
  Sex: Female

DRUGS (2)
  1. ZOLEDRONIC ACID [Suspect]
     Indication: METASTASES TO BONE
  2. PAMIDRONATE DISODIUM [Suspect]

REACTIONS (6)
  - BONE DISORDER [None]
  - DEBRIDEMENT [None]
  - JAW OPERATION [None]
  - OSTEONECROSIS [None]
  - PAIN [None]
  - SINUS PERFORATION [None]
